FAERS Safety Report 4766829-5 (Version None)
Quarter: 2005Q3

REPORT INFORMATION
  Report Type: 
  Country: None (occurrence: None)
  Receive Date: 20050908
  Receipt Date: 20050823
  Transmission Date: 20060218
  Serious: Yes (Hospitalization)
  Sender: FDA-Public Use
  Company Number: 0205003

PATIENT
  Age: 69 Year
  Sex: Male

DRUGS (3)
  1. MORPHINE SULFATE [Suspect]
     Indication: HIP ARTHROPLASTY
     Dosage: (15 MG, ONCE) , INTRATHECAL
     Route: 037
     Dates: start: 20050118, end: 20050118
  2. MORPHINE SULFATE [Suspect]
     Indication: PROCEDURAL PAIN
     Dosage: (15 MG, ONCE) , INTRATHECAL
     Route: 037
     Dates: start: 20050118, end: 20050118
  3. ATIVAN (LORAZEPAM) INJECTION FOR INFUSION) [Concomitant]

REACTIONS (7)
  - CONFUSIONAL STATE [None]
  - DRUG ADMINISTRATION ERROR [None]
  - INSOMNIA [None]
  - INTENTIONAL MISUSE [None]
  - RESPIRATORY DEPRESSION [None]
  - SEDATION [None]
  - SOMNOLENCE [None]
